FAERS Safety Report 14290130 (Version 1)
Quarter: 2017Q4

REPORT INFORMATION
  Report Type: Spontaneous
  Country: US (occurrence: US)
  Receive Date: 20171215
  Receipt Date: 20171215
  Transmission Date: 20180321
  Serious: No
  Sender: FDA-Public Use
  Company Number: US-TEVA-764168USA

PATIENT
  Sex: Female

DRUGS (9)
  1. DICLOFENAC [Concomitant]
     Active Substance: DICLOFENAC
  2. MYRBETRIQ [Concomitant]
     Active Substance: MIRABEGRON
  3. OXYBUTYNIN. [Suspect]
     Active Substance: OXYBUTYNIN CHLORIDE
     Indication: PRODUCT USED FOR UNKNOWN INDICATION
     Dosage: 13.3333 MILLIGRAM DAILY;
     Dates: start: 20151215
  4. VESICARE [Suspect]
     Active Substance: SOLIFENACIN SUCCINATE
     Indication: URGE INCONTINENCE
     Route: 048
  5. ESTRING [Concomitant]
     Active Substance: ESTRADIOL
  6. SIMVASTATIN. [Concomitant]
     Active Substance: SIMVASTATIN
  7. LEVOTHYROXINE. [Concomitant]
     Active Substance: LEVOTHYROXINE
  8. OMEPRAZOLE. [Concomitant]
     Active Substance: OMEPRAZOLE
  9. DEXAMETHASONE. [Concomitant]
     Active Substance: DEXAMETHASONE

REACTIONS (3)
  - Infective glossitis [Recovered/Resolved]
  - Gingivitis [Recovered/Resolved]
  - Dry throat [Recovered/Resolved]
